FAERS Safety Report 11776663 (Version 1)
Quarter: 2015Q4

REPORT INFORMATION
  Report Type: Spontaneous
  Country: AU (occurrence: AU)
  Receive Date: 20151125
  Receipt Date: 20151125
  Transmission Date: 20160304
  Serious: Yes (Other)
  Sender: FDA-Public Use
  Company Number: AU-SA-2015SA184916

PATIENT
  Age: 80 Year
  Sex: Male

DRUGS (1)
  1. BCG FOR IMMUNOTHERAPY [Suspect]
     Active Substance: BACILLUS CALMETTE-GUERIN ANTIGEN, UNSPECIFIED SUBSTRAIN
     Indication: BLADDER CANCER
     Route: 043
     Dates: start: 2012, end: 2012

REACTIONS (8)
  - Disseminated Bacillus Calmette-Guerin infection [Unknown]
  - Weight decreased [Unknown]
  - Nasopharyngitis [Unknown]
  - Fatigue [Unknown]
  - Decreased appetite [Unknown]
  - Wound secretion [Not Recovered/Not Resolved]
  - Night sweats [Unknown]
  - Malaise [Unknown]

NARRATIVE: CASE EVENT DATE: 2013
